FAERS Safety Report 8495829-7 (Version None)
Quarter: 2012Q3

REPORT INFORMATION
  Report Type: 
  Country: None (occurrence: None)
  Receive Date: 20120709
  Receipt Date: 20120704
  Transmission Date: 20120928
  Serious: Yes (Other)
  Sender: FDA-Public Use
  Company Number: PHHY2012JP047209

PATIENT
  Sex: Male
  Weight: 55 kg

DRUGS (7)
  1. TOLTERODINE TARTRATE [Concomitant]
     Indication: HYPERTONIC BLADDER
     Dosage: 4 MG,
     Route: 048
  2. DIOVAN [Concomitant]
     Indication: HYPERTENSION
     Dosage: 80 MG,
     Route: 048
     Dates: start: 20110902
  3. RASILEZ [Suspect]
     Indication: HYPERTENSION
     Dosage: 150 MG/DAY
     Route: 048
     Dates: start: 20120406, end: 20120601
  4. EXFORGE [Concomitant]
     Indication: HYPERTENSION
     Dosage: 1 DF,
     Route: 048
     Dates: start: 20110318
  5. CARVEDILOL [Concomitant]
     Indication: HYPERTENSION
     Dosage: 2.5 MG,
     Route: 048
     Dates: start: 20110708
  6. AZULFIDINE [Concomitant]
     Indication: RHEUMATOID ARTHRITIS
     Dosage: 1000 MG,
     Route: 048
     Dates: start: 20040618
  7. LORAZEPAM [Concomitant]
     Indication: ANXIETY DISORDER
     Dosage: 1 MG,
     Route: 048

REACTIONS (1)
  - DRUG-INDUCED LIVER INJURY [None]
